FAERS Safety Report 5738743-X (Version None)
Quarter: 2008Q2

REPORT INFORMATION
  Report Type: 
  Country: None (occurrence: None)
  Receive Date: 20080512
  Receipt Date: 20080512
  Transmission Date: 20081010
  Serious: No
  Sender: FDA-Public Use
  Company Number: None

PATIENT
  Age: 36 Year
  Sex: Female
  Weight: 52.1637 kg

DRUGS (1)
  1. LYRICA [Suspect]
     Indication: FIBROMYALGIA
     Dosage: 50 MG 3X DAILY PO
     Route: 048
     Dates: start: 20071101, end: 20080205

REACTIONS (46)
  - ABASIA [None]
  - ABDOMINAL DISTENSION [None]
  - AMNESIA [None]
  - APATHY [None]
  - AUTONOMIC NERVOUS SYSTEM IMBALANCE [None]
  - CARDIAC DISORDER [None]
  - COGNITIVE DISORDER [None]
  - COLD SWEAT [None]
  - CONFUSIONAL STATE [None]
  - CONJUNCTIVITIS [None]
  - DEPRESSION [None]
  - DIARRHOEA [None]
  - DISORIENTATION [None]
  - DISTURBANCE IN ATTENTION [None]
  - DIZZINESS [None]
  - DRY EYE [None]
  - DYSPNOEA [None]
  - DYSSTASIA [None]
  - FALL [None]
  - FATIGUE [None]
  - FEELING ABNORMAL [None]
  - GAIT DISTURBANCE [None]
  - HYPERHIDROSIS [None]
  - HYPOTHYROIDISM [None]
  - MOTOR DYSFUNCTION [None]
  - MUSCLE SPASMS [None]
  - MUSCLE TWITCHING [None]
  - MUSCULAR WEAKNESS [None]
  - MYALGIA [None]
  - NAUSEA [None]
  - NIGHT BLINDNESS [None]
  - NIGHTMARE [None]
  - OEDEMA [None]
  - OEDEMA MOUTH [None]
  - OEDEMA PERIPHERAL [None]
  - PARAESTHESIA [None]
  - RESTLESS LEGS SYNDROME [None]
  - SENSATION OF HEAVINESS [None]
  - SLEEP DISORDER [None]
  - SPEECH DISORDER [None]
  - SWELLING [None]
  - SWOLLEN TONGUE [None]
  - VISION BLURRED [None]
  - VISUAL DISTURBANCE [None]
  - VOMITING [None]
  - WEIGHT INCREASED [None]
